FAERS Safety Report 21738397 (Version 1)
Quarter: 2022Q4

REPORT INFORMATION
  Report Type: Spontaneous
  Country: NL (occurrence: NL)
  Receive Date: 20221216
  Receipt Date: 20221216
  Transmission Date: 20230113
  Serious: Yes (Death)
  Sender: FDA-Public Use
  Company Number: None

PATIENT
  Sex: Male
  Weight: 78 kg

DRUGS (1)
  1. CARBAMAZEPINE [Suspect]
     Active Substance: CARBAMAZEPINE
     Indication: Trigeminal neuralgia
     Dosage: 400 MILLIGRAM DAILY; BRAND NAME NOT SPECIFIED, FORM STRENGTH : 100 MG, DURATION : 42 DAYS
     Route: 065
     Dates: start: 20220428, end: 20220609

REACTIONS (1)
  - Aplastic anaemia [Fatal]
